FAERS Safety Report 18652895 (Version 1)
Quarter: 2020Q4

REPORT INFORMATION
  Report Type: Spontaneous
  Country: IN (occurrence: IN)
  Receive Date: 20201223
  Receipt Date: 20201223
  Transmission Date: 20210114
  Serious: Yes (Other)
  Sender: FDA-Public Use
  Company Number: IN-HETERO-HET2020IN01390

PATIENT
  Age: 30 Year
  Sex: Male

DRUGS (2)
  1. LEVOCETIRIZINE [Suspect]
     Active Substance: LEVOCETIRIZINE
     Indication: NEURODERMATITIS
     Dosage: UNK
     Route: 065
  2. CLOBETASOL PROPIONATE. [Concomitant]
     Active Substance: CLOBETASOL PROPIONATE
     Indication: NEURODERMATITIS
     Dosage: UNK
     Route: 065

REACTIONS (1)
  - Symmetrical drug-related intertriginous and flexural exanthema [Recovered/Resolved]
